FAERS Safety Report 23132650 (Version 1)
Quarter: 2023Q4

REPORT INFORMATION
  Report Type: Report from Study
  Country: US (occurrence: US)
  Receive Date: 20231101
  Receipt Date: 20231101
  Transmission Date: 20240109
  Serious: Yes (Hospitalization)
  Sender: FDA-Public Use
  Company Number: US-ABBVIE-5475428

PATIENT
  Sex: Male

DRUGS (3)
  1. VENCLEXTA [Suspect]
     Active Substance: VENETOCLAX
     Indication: Acute myeloid leukaemia
     Dosage: STRENGTH:100MG, TAKE 1 TABLET BY MOUTH ON DAY 1  WITH FOOD AND FULL GLASS OF WATER
     Route: 048
  2. VENCLEXTA [Suspect]
     Active Substance: VENETOCLAX
     Indication: Acute myeloid leukaemia
     Dosage: STRENGTH:100 MG,  2 TABLETS ON DAY 2 WITH FOOD AND FULL GLASS OF WATER
     Route: 048
  3. VENCLEXTA [Suspect]
     Active Substance: VENETOCLAX
     Indication: Acute myeloid leukaemia
     Dosage: STRENGTH:100 MG, THEN 4 TABLETS ONCE DAILY THEREAFTER WITH FOOD AND FULL GLASS OF WATER
     Route: 048

REACTIONS (2)
  - Blood glucose decreased [Not Recovered/Not Resolved]
  - Illness [Not Recovered/Not Resolved]
